FAERS Safety Report 8257911-9 (Version None)
Quarter: 2012Q2

REPORT INFORMATION
  Report Type: 
  Country: None (occurrence: None)
  Receive Date: 20120404
  Receipt Date: 20120329
  Transmission Date: 20120825
  Serious: Yes (Other)
  Sender: FDA-Public Use
  Company Number: US-PFIZER INC-2012062552

PATIENT
  Sex: Female

DRUGS (41)
  1. ACETYLSALICYLIC ACID [Concomitant]
     Dosage: 325 MG, UNK
     Route: 048
  2. FENTANYL [Concomitant]
     Dosage: 25 MCG/HR FILM, EXTENDED RELEASE
  3. TYLENOL [Concomitant]
     Dosage: 325 MG, UNK
     Route: 048
  4. VENLAFAXINE HYDROCHLORIDE [Concomitant]
     Dosage: 75 MG, UNK
     Route: 048
  5. CALCIUM WITH VITAMIN D [Concomitant]
     Dosage: UNK
     Route: 048
  6. EFFEXOR XR [Concomitant]
     Dosage: 75 MG CAPSULE, EXTENDED RELEASE
  7. MECLIZINE HYDROCHLORIDE [Concomitant]
     Dosage: 12.5 MG, UNK
     Route: 048
  8. METFORMIN HYDROCHLORIDE [Concomitant]
     Dosage: 1000 MG, UNK
     Route: 048
  9. MIRALAX [Concomitant]
     Dosage: UNK
  10. AZITHROMYCIN [Concomitant]
     Dosage: 250 MG, UNK
     Route: 048
  11. FUROSEMIDE [Concomitant]
     Dosage: 40 MG, UNK
     Route: 048
  12. LASIX [Concomitant]
     Dosage: 40 MG, UNK
     Route: 048
  13. MILK OF MAGNESIA TAB [Concomitant]
     Dosage: 8 %, (8% SUSPENSION)
  14. OMEPRAZOLE [Concomitant]
     Dosage: 20MG ENTERIC COATED TABLET
     Route: 048
  15. COLACE [Concomitant]
     Dosage: 100 MG, UNK
     Route: 048
  16. PAROXETINE HYDROCHLORIDE [Concomitant]
     Dosage: 20 MG, UNK
     Route: 048
  17. ACETAMINOPHEN AND HYDROCODONE BITARTRATE [Concomitant]
     Dosage: 500 MG-5 MG TABLET
     Route: 048
  18. CARBIDOPA + LEVODOPA [Concomitant]
     Dosage: 25MG-100MG TABLET
     Route: 048
  19. DETROL LA [Concomitant]
     Dosage: 4 MG CAPSULE, EXTENDED RELEASE
  20. GLYCERIN [Concomitant]
     Dosage: UNK
  21. METOPROLOL SUCCINATE [Concomitant]
     Dosage: 100 MG TABLET, EXTENDED RELEASE
  22. ROPINIROLE HYDROCHLORIDE [Concomitant]
     Dosage: 2 MG, UNK
     Route: 048
  23. LYRICA [Suspect]
     Indication: DIABETIC NEUROPATHY
     Dosage: 75 MG, 2X/DAY
     Route: 048
     Dates: start: 20120228
  24. ESTRADIOL [Concomitant]
     Dosage: 0.05 MG/24 HOURS WEEKLY FILM, EXTENDED RELEASE
  25. LORTAB [Concomitant]
     Dosage: 500 MG-7.5 MG TABLET
     Route: 048
  26. OMEPRAZOLE [Concomitant]
     Dosage: 20 MG DELAYED RELEASE CAPSULE
     Route: 048
  27. PRAVASTATIN SODIUM [Concomitant]
     Dosage: 40 MG, UNK
     Route: 048
  28. EXTRA STRENGTH TYLENOL [Concomitant]
     Dosage: 500 MG, UNK
     Route: 048
  29. VESICARE [Concomitant]
     Dosage: 10 MG, UNK
     Route: 048
  30. XANAX [Concomitant]
     Dosage: 1 MG, UNK
     Route: 048
  31. CALCIUM CARBONATE [Concomitant]
     Dosage: 500 MG, UNK
     Route: 048
  32. FISH OIL [Concomitant]
     Dosage: UNK
     Route: 048
  33. GLIPIZIDE [Concomitant]
     Dosage: 10 MG, UNK
     Route: 048
  34. LISINOPRIL [Concomitant]
     Dosage: 20 MG, UNK
     Route: 048
  35. POTASSIUM CHLORIDE [Concomitant]
     Dosage: 10 MEQ/100 ML SOLUTION
  36. MULTI-VITAMINS [Concomitant]
     Dosage: 1 MG, UNK
     Route: 048
  37. ACTOS [Concomitant]
     Dosage: 30 MG, UNK
     Route: 048
  38. AMANTADINE HYDROCHLORIDE [Concomitant]
     Dosage: 100 MG, UNK
     Route: 048
  39. IBUPROFEN [Concomitant]
     Dosage: 400 MG, UNK
     Route: 048
  40. SINEMET [Concomitant]
     Dosage: 25 MG-100 MG TABLET
     Route: 048
  41. ASCORBIC ACID [Concomitant]
     Dosage: 500 MG, UNK
     Route: 048

REACTIONS (1)
  - HYPOGLYCAEMIA [None]
